FAERS Safety Report 22936470 (Version 8)
Quarter: 2025Q1

REPORT INFORMATION
  Report Type: Spontaneous
  Country: FR (occurrence: FR)
  Receive Date: 20230912
  Receipt Date: 20250325
  Transmission Date: 20250409
  Serious: Yes (Hospitalization, Other)
  Sender: PFIZER
  Company Number: None

PATIENT
  Age: 61 Year
  Sex: Male

DRUGS (48)
  1. ELIQUIS [Suspect]
     Active Substance: APIXABAN
     Dosage: 1 DF, BID (MORNING AND EVENING)
     Route: 065
  2. LANSOPRAZOLE [Suspect]
     Active Substance: LANSOPRAZOLE
     Dosage: 1 DF, QD (EVENING)
     Route: 065
  3. LEUCOVORIN CALCIUM [Suspect]
     Active Substance: LEUCOVORIN CALCIUM
     Dosage: 5 MG, ON MONDAY, WEDNESDAY, FRIDAY
     Route: 065
  4. METHYLPREDNISOLONE SODIUM SUCCINATE [Suspect]
     Active Substance: METHYLPREDNISOLONE SODIUM SUCCINATE
     Route: 065
     Dates: start: 20230309, end: 20230313
  5. ZIEXTENZO [Suspect]
     Active Substance: PEGFILGRASTIM-BMEZ
     Route: 065
     Dates: start: 20230527
  6. CERTICAN [Suspect]
     Active Substance: EVEROLIMUS
     Indication: Lung transplant rejection
     Dosage: 1 MG, BID (MORNING AND EVENING) (AMP IM)
     Route: 065
  7. CERTICAN [Suspect]
     Active Substance: EVEROLIMUS
     Dosage: 1.5 MG, MORNING AND EVENING (AMP IM)
     Route: 065
     Dates: start: 20230415
  8. CERTICAN [Suspect]
     Active Substance: EVEROLIMUS
     Dosage: 1 MG, 2X/DAY (AMP IM)
     Route: 065
     Dates: start: 202304
  9. VALGANCICLOVIR HYDROCHLORIDE [Suspect]
     Active Substance: VALGANCICLOVIR HYDROCHLORIDE
     Indication: Antiviral prophylaxis
     Route: 065
     Dates: start: 202304, end: 20230629
  10. CELLCEPT [Suspect]
     Active Substance: MYCOPHENOLATE MOFETIL
     Indication: Lung transplant rejection
     Dosage: 1 DF, BID (MORNING AND EVENING)
     Route: 065
     Dates: start: 202304, end: 202306
  11. CELLCEPT [Suspect]
     Active Substance: MYCOPHENOLATE MOFETIL
     Route: 065
     Dates: start: 202306
  12. PENTACARINAT [Suspect]
     Active Substance: PENTAMIDINE ISETHIONATE
     Dosage: 300 MG, QM (AMP IM)
     Route: 065
     Dates: start: 20230712
  13. SOTALOL [Suspect]
     Active Substance: SOTALOL
     Dosage: 0.5 DF, BID (1/2 TABLET MORNING AND EVENING)
     Route: 065
  14. MAGNESIUM CARBONATE [Suspect]
     Active Substance: MAGNESIUM CARBONATE
     Dosage: (2 SACHETS IN THE MORNING) (AMP IM)
     Route: 065
  15. PANTOPRAZOLE [Suspect]
     Active Substance: PANTOPRAZOLE
     Dosage: 20 MG, 1X/DAY
     Route: 048
  16. CASPOFUNGIN [Suspect]
     Active Substance: CASPOFUNGIN
     Route: 065
     Dates: start: 20230309, end: 20230313
  17. OLODATEROL HYDROCHLORIDE\TIOTROPIUM BROMIDE MONOHYDRATE [Suspect]
     Active Substance: OLODATEROL HYDROCHLORIDE\TIOTROPIUM BROMIDE MONOHYDRATE
     Dosage: 2 PUFFS, DAILY (AMP IM)
     Route: 055
  18. VITAMIN D3 [Suspect]
     Active Substance: CHOLECALCIFEROL
     Dosage: 500MG/4000 IU: 1 BAG IN THE MORNING
     Route: 065
  19. PREDNISONE [Suspect]
     Active Substance: PREDNISONE
     Indication: Lung transplant rejection
     Dosage: 7.5 MG, QD, FOR 15 DAYS
     Route: 065
     Dates: start: 202304
  20. PREDNISONE [Suspect]
     Active Substance: PREDNISONE
     Dosage: 10 MG, QD, FOR 15 DAYS
     Route: 065
     Dates: start: 202304
  21. PREDNISONE [Suspect]
     Active Substance: PREDNISONE
     Dosage: 25 MG, QD
     Route: 065
     Dates: start: 202304
  22. PREDNISONE [Suspect]
     Active Substance: PREDNISONE
     Dosage: 5 MG, QD, FOR 15 DAYS
     Route: 065
  23. PREDNISONE [Suspect]
     Active Substance: PREDNISONE
     Dosage: 12.5 MG, QD, FOR 15 DAYS
     Route: 065
     Dates: start: 202304
  24. CYCLOSPORINE [Suspect]
     Active Substance: CYCLOSPORINE
     Route: 065
     Dates: start: 20230309, end: 20230313
  25. CRESTOR [Suspect]
     Active Substance: ROSUVASTATIN CALCIUM
     Dosage: 10 MG, QD (IN THE EVENING)
     Route: 048
  26. PROGRAF [Suspect]
     Active Substance: TACROLIMUS
     Indication: Lung transplant rejection
     Dosage: 4 MG, 2X/DAY
     Route: 065
     Dates: start: 202304
  27. PROGRAF [Suspect]
     Active Substance: TACROLIMUS
     Dosage: 3 MG, BID (MORNING AND EVENING) (AMP IM)
     Route: 065
     Dates: start: 202304
  28. PROGRAF [Suspect]
     Active Substance: TACROLIMUS
     Dosage: 2 MG, BID (MORNING AND EVENING)
  29. PROGRAF [Suspect]
     Active Substance: TACROLIMUS
     Dosage: 6 MG, 1X/DAY
  30. PROGRAF [Suspect]
     Active Substance: TACROLIMUS
     Dosage: 4 UNK
  31. AMOXICILLIN\CLAVULANATE POTASSIUM [Suspect]
     Active Substance: AMOXICILLIN\CLAVULANATE POTASSIUM
     Route: 065
     Dates: start: 20230309, end: 20230313
  32. GANCICLOVIR [Suspect]
     Active Substance: GANCICLOVIR
     Route: 065
     Dates: start: 20230309, end: 20230313
  33. SIMULECT [Suspect]
     Active Substance: BASILIXIMAB
     Route: 065
     Dates: start: 20230309, end: 20230313
  34. TACROLIMUS [Suspect]
     Active Substance: TACROLIMUS
     Indication: Lung transplant rejection
     Dosage: 3 MG, BID, (MORNING AND EVENING)
     Route: 065
  35. TACROLIMUS [Suspect]
     Active Substance: TACROLIMUS
     Dosage: 3 MG, BID, (MORNING AND EVENING)
     Route: 065
  36. TACROLIMUS [Suspect]
     Active Substance: TACROLIMUS
     Dosage: 4 MG, BID, (2 TIMES DAY)
     Route: 065
     Dates: start: 202304
  37. MYCOPHENOLATE MOFETIL [Suspect]
     Active Substance: MYCOPHENOLATE MOFETIL
     Indication: Lung transplant rejection
     Route: 065
     Dates: start: 202304
  38. MYCOPHENOLATE MOFETIL [Suspect]
     Active Substance: MYCOPHENOLATE MOFETIL
     Route: 065
     Dates: start: 202306
  39. PREDNISONE [Suspect]
     Active Substance: PREDNISONE
     Indication: Lung transplant rejection
     Dosage: 25 MG, QD (AMP IM), REPORTED AS CORTANCYL
     Route: 065
     Dates: start: 202304
  40. PREDNISONE [Suspect]
     Active Substance: PREDNISONE
     Dosage: 10 MG, QD (FOR 15 DAYS) (AMP IM)
     Route: 065
     Dates: start: 202304
  41. PREDNISONE [Suspect]
     Active Substance: PREDNISONE
     Dosage: 7.5 MG, QD (FOR 15 DAYS) (AMP IM)
     Route: 065
     Dates: start: 202304
  42. PREDNISONE [Suspect]
     Active Substance: PREDNISONE
     Dosage: 12.5 MG, QD (FOR 15 DAYS) (AMP IM)
     Route: 065
     Dates: start: 202304
  43. PREDNISONE [Suspect]
     Active Substance: PREDNISONE
     Dosage: 5 MG, QD (FOR 15 DAYS) (AMP IM)
  44. CALCIUM CARBONATE [Suspect]
     Active Substance: CALCIUM CARBONATE
     Dosage: 500MG/400UI: 1 SACHET IN THE MORNING (AMP IM), (1 EVERY 1 DAY)
  45. AUGMENTIN [Suspect]
     Active Substance: AMOXICILLIN\CLAVULANATE POTASSIUM
     Route: 065
     Dates: start: 20230309, end: 20230313
  46. ROSUVASTATIN [Suspect]
     Active Substance: ROSUVASTATIN
     Dosage: 10 MG, 1X/DAY
     Route: 048
  47. VALGANCICLOVIR [Suspect]
     Active Substance: VALGANCICLOVIR
     Indication: Antiviral prophylaxis
     Dates: start: 202304, end: 20230629
  48. GANCICLOVIR SODIUM [Suspect]
     Active Substance: GANCICLOVIR SODIUM
     Dates: start: 20230309, end: 20230313

REACTIONS (2)
  - Neutropenia [Recovering/Resolving]
  - Stenotrophomonas infection [Recovered/Resolved]

NARRATIVE: CASE EVENT DATE: 20230530
